FAERS Safety Report 9718363 (Version 1)
Quarter: 2013Q4

REPORT INFORMATION
  Report Type: Spontaneous
  Country: US (occurrence: US)
  Receive Date: 20131125
  Receipt Date: 20131125
  Transmission Date: 20140711
  Serious: No
  Sender: FDA-Public Use
  Company Number: US-VIVUS-2013V1000288

PATIENT
  Age: 58 Year
  Sex: Female
  Weight: 92.62 kg

DRUGS (4)
  1. QSYMIA 3.75MG/23MG [Suspect]
     Indication: OVERWEIGHT
     Route: 048
     Dates: start: 20130405, end: 20130410
  2. QSYMIA 3.75MG/23MG [Suspect]
     Indication: SLEEP APNOEA SYNDROME
  3. WELLBUTRIN [Concomitant]
     Indication: MENOPAUSAL SYMPTOMS
     Route: 048
     Dates: start: 2008
  4. NEXIUM [Concomitant]
     Indication: GASTROOESOPHAGEAL REFLUX DISEASE
     Route: 048
     Dates: start: 2003

REACTIONS (2)
  - Pain in extremity [Recovered/Resolved]
  - Drug dose omission [Unknown]
